FAERS Safety Report 8108385-X (Version None)
Quarter: 2012Q1

REPORT INFORMATION
  Report Type: 
  Country: None (occurrence: None)
  Receive Date: 20120202
  Receipt Date: 20120126
  Transmission Date: 20120608
  Serious: Yes (Other)
  Sender: FDA-Public Use
  Company Number: PHHY2010US55512

PATIENT
  Sex: Male
  Weight: 46 kg

DRUGS (7)
  1. TOBI [Suspect]
     Indication: CYSTIC FIBROSIS
     Dosage: 300 MG, BID
  2. ASTHMA INHALER [Concomitant]
     Dosage: UNK
  3. HYPERTONIC SOLUTIONS [Concomitant]
  4. HYPERTONIC SOLUTIONS [Concomitant]
  5. CAYSTON [Concomitant]
  6. PULMOZYME [Concomitant]
  7. TOBI [Suspect]
     Dosage: 300 MG, BID
     Dates: start: 20101015

REACTIONS (10)
  - MALAISE [None]
  - SYNCOPE [None]
  - FATIGUE [None]
  - PYREXIA [None]
  - DYSPHONIA [None]
  - DIZZINESS [None]
  - PULMONARY FUNCTION TEST DECREASED [None]
  - COUGH [None]
  - IRRITABILITY [None]
  - GENERAL PHYSICAL CONDITION ABNORMAL [None]
